FAERS Safety Report 8434261-9 (Version None)
Quarter: 2012Q2

REPORT INFORMATION
  Report Type: 
  Country: None (occurrence: None)
  Receive Date: 20120613
  Receipt Date: 20120530
  Transmission Date: 20120825
  Serious: No
  Sender: FDA-Public Use
  Company Number: US-ASTRAZENECA-2011SE69421

PATIENT
  Age: 58 Year
  Sex: Female

DRUGS (8)
  1. NEXIUM [Suspect]
     Route: 048
  2. MUSCLE RELAXERS [Concomitant]
  3. FLONASE [Concomitant]
  4. ALLERGY MEDICATION [Concomitant]
  5. ALBUTEROL [Concomitant]
  6. PAIN MEDICATION [Concomitant]
  7. PREDNISONE TAB [Concomitant]
  8. ADVAIR DISKUS 100/50 [Concomitant]

REACTIONS (12)
  - DYSPEPSIA [None]
  - ASTHENIA [None]
  - BURSITIS [None]
  - MALAISE [None]
  - ARTHROPATHY [None]
  - INTENTIONAL DRUG MISUSE [None]
  - SCOLIOSIS [None]
  - VITAMIN D ABNORMAL [None]
  - INSOMNIA [None]
  - VOMITING [None]
  - ARTHRITIS [None]
  - SINUSITIS [None]
